FAERS Safety Report 11383681 (Version 3)
Quarter: 2015Q3

REPORT INFORMATION
  Report Type: Report from Study
  Country: DE (occurrence: DE)
  Receive Date: 20150814
  Receipt Date: 20150924
  Transmission Date: 20151125
  Serious: Yes (Death, Hospitalization)
  Sender: FDA-Public Use
  Company Number: DE-ABBVIE-15P-062-1442863-00

PATIENT
  Sex: Female

DRUGS (1)
  1. DUODOPA [Suspect]
     Active Substance: CARBIDOPA\LEVODOPA
     Indication: PARKINSON^S DISEASE
     Dosage: MD 6.3ML, KRT 3ML/H, ED 1.5ML
     Route: 050
     Dates: start: 20100527

REACTIONS (3)
  - General physical health deterioration [Fatal]
  - Hypophagia [Unknown]
  - Feeding tube complication [Unknown]
